FAERS Safety Report 7531451-4 (Version None)
Quarter: 2011Q2

REPORT INFORMATION
  Report Type: 
  Country: None (occurrence: None)
  Receive Date: 20110608
  Receipt Date: 20110530
  Transmission Date: 20111010
  Serious: Yes (Hospitalization, Other)
  Sender: FDA-Public Use
  Company Number: FR-AMGEN-FRASP2011027916

PATIENT
  Age: 45 Year
  Sex: Male

DRUGS (3)
  1. ENBREL [Suspect]
     Indication: ANKYLOSING SPONDYLITIS
     Dosage: 50 MG, WEEKLY
     Dates: start: 20090917, end: 20110201
  2. ENBREL [Suspect]
     Dosage: 50 MG, WEEKLY
     Dates: start: 20110323
  3. BUTAZOLIDIN [Suspect]
     Dosage: UNK
     Dates: end: 20110201

REACTIONS (4)
  - IMPAIRED HEALING [None]
  - HAEMORRHAGIC ANAEMIA [None]
  - DUODENAL ULCER HAEMORRHAGE [None]
  - ANKYLOSING SPONDYLITIS [None]
